FAERS Safety Report 11783742 (Version 1)
Quarter: 2015Q4

REPORT INFORMATION
  Report Type: Spontaneous
  Country: GB (occurrence: GB)
  Receive Date: 20151127
  Receipt Date: 20151127
  Transmission Date: 20160305
  Serious: Yes (Other)
  Sender: FDA-Public Use
  Company Number: GB-HOSPIRA-3091947

PATIENT

DRUGS (10)
  1. ONDANSETRON [Concomitant]
     Active Substance: ONDANSETRON
     Indication: ANTIEMETIC SUPPORTIVE CARE
     Dosage: ON DAY 1 OF EACH CYCLE
  2. DOMPERIDONE [Concomitant]
     Active Substance: DOMPERIDONE
     Indication: ANTIEMETIC SUPPORTIVE CARE
  3. FLUOROURACIL. [Suspect]
     Active Substance: FLUOROURACIL
     Indication: ADENOCARCINOMA PANCREAS
     Dosage: OVER 46 HOURS EVERY 14 DAYS
     Route: 041
     Dates: start: 201107, end: 201405
  4. CALCIUM FOLINATE [Suspect]
     Active Substance: LEUCOVORIN CALCIUM
     Indication: ADENOCARCINOMA PANCREAS
     Dosage: OVER 46 HOURS EVERY 14 DAYS
     Route: 042
     Dates: start: 201107, end: 201405
  5. DEXAMETHASONE. [Concomitant]
     Active Substance: DEXAMETHASONE
     Indication: ANTIEMETIC SUPPORTIVE CARE
     Dosage: ON DAY 1 OF EACH CYCLE
  6. APREPITANT. [Concomitant]
     Active Substance: APREPITANT
     Indication: ANTIEMETIC SUPPORTIVE CARE
  7. LOPERAMIDE [Concomitant]
     Active Substance: LOPERAMIDE
     Indication: DIARRHOEA
  8. IRINOTECAN HYDROCHLORIDE. [Suspect]
     Active Substance: IRINOTECAN HYDROCHLORIDE
     Indication: ADENOCARCINOMA PANCREAS
     Dosage: 130-135 MG/M^2, OVER 46 HOURS EVERY 14 DAYS
     Route: 042
     Dates: start: 201107, end: 201405
  9. FILGRASTIM [Suspect]
     Active Substance: FILGRASTIM
     Indication: ADENOCARCINOMA PANCREAS
     Dosage: ON 14-DAY CYCLE
     Route: 058
     Dates: start: 201107, end: 201405
  10. OXALIPLATIN. [Suspect]
     Active Substance: OXALIPLATIN
     Indication: ADENOCARCINOMA PANCREAS
     Dosage: OVER 46 HOURS EVERY 14 DAYS
     Route: 042
     Dates: start: 201107, end: 201405

REACTIONS (1)
  - Fatigue [Unknown]
